FAERS Safety Report 4941244-X (Version None)
Quarter: 2006Q1

REPORT INFORMATION
  Report Type: 
  Country: None (occurrence: None)
  Receive Date: 20060308
  Receipt Date: 20060220
  Transmission Date: 20060701
  Serious: Yes (Other)
  Sender: FDA-Public Use
  Company Number: ACO_0216_2006

PATIENT
  Age: 59 Year
  Sex: Female

DRUGS (4)
  1. SIRDALUD [Suspect]
     Indication: MUSCLE SPASTICITY
     Dosage: 8 MG QDAY PO
     Route: 048
     Dates: start: 20060208, end: 20060210
  2. NSAID'S [Concomitant]
  3. VITAMINS [Concomitant]
  4. CALCIUM GLUCONATE [Concomitant]

REACTIONS (7)
  - BRADYCARDIA [None]
  - GASTROINTESTINAL HYPOMOTILITY [None]
  - HYPOTENSION [None]
  - INCORRECT DOSE ADMINISTERED [None]
  - NAUSEA [None]
  - SLEEP DISORDER [None]
  - VOMITING [None]
